FAERS Safety Report 5116360-2 (Version None)
Quarter: 2006Q3

REPORT INFORMATION
  Report Type: 
  Country: None (occurrence: None)
  Receive Date: 20060925
  Receipt Date: 20060912
  Transmission Date: 20061208
  Serious: Yes (Hospitalization)
  Sender: FDA-Public Use
  Company Number: 2006BH013440

PATIENT
  Age: 28 Year
  Sex: Female
  Weight: 76.2043 kg

DRUGS (2)
  1. EXTRANEAL [Suspect]
     Indication: PERITONEAL DIALYSIS
     Dosage: IP
     Route: 033
     Dates: start: 20060905, end: 20060911
  2. DIANEAL [Suspect]
     Indication: PERITONEAL DIALYSIS
     Dosage: 11.5 L;EVERY DAY;IP
     Route: 033
     Dates: start: 20060301

REACTIONS (3)
  - MUSCULOSKELETAL PAIN [None]
  - PERITONITIS [None]
  - RASH [None]
